FAERS Safety Report 9060986 (Version 2)
Quarter: 2014Q1

REPORT INFORMATION
  Report Type: Spontaneous
  Country: US (occurrence: US)
  Receive Date: 20130213
  Receipt Date: 20140131
  Transmission Date: 20141002
  Serious: Yes (Other)
  Sender: FDA-Public Use
  Company Number: US-AMGEN-USASP2013008213

PATIENT
  Age: 88 Year
  Sex: Female

DRUGS (4)
  1. SENSIPAR [Suspect]
     Indication: HYPERPARATHYROIDISM SECONDARY
     Dosage: 60 MG, BID
     Route: 065
     Dates: start: 20130201
  2. GLUCOSEAMINE SULPHATE [Concomitant]
     Dosage: UNK
  3. CALCIUM [Concomitant]
     Dosage: 500 MG, QD
  4. VITAMIN D                          /00107901/ [Concomitant]

REACTIONS (6)
  - Vision blurred [Unknown]
  - Dysgeusia [Recovered/Resolved]
  - Middle insomnia [Unknown]
  - Constipation [Unknown]
  - Asthenia [Unknown]
  - Diarrhoea [Unknown]
